FAERS Safety Report 6522592-9 (Version None)
Quarter: 2009Q4

REPORT INFORMATION
  Report Type: 
  Country: None (occurrence: None)
  Receive Date: 20091214
  Receipt Date: 20090903
  Transmission Date: 20100525
  Serious: Yes (Other)
  Sender: FDA-Public Use
  Company Number: 654352

PATIENT
  Age: 51 Year
  Sex: Male
  Weight: 104.3 kg

DRUGS (3)
  1. PEGASYS [Suspect]
     Indication: HEPATITIS C
     Dosage: 180 UG 1 PER WEEK
     Dates: start: 20090201
  2. RIBAVIRIN [Suspect]
     Indication: HEPATITIS C
     Dosage: 1200 MG DAILY
     Dates: start: 20090201
  3. OXYCODONE HCL [Concomitant]

REACTIONS (6)
  - DEPRESSION [None]
  - FATIGUE [None]
  - INCORRECT STORAGE OF DRUG [None]
  - NO ADVERSE EVENT [None]
  - STOMATITIS [None]
  - VIOLENCE-RELATED SYMPTOM [None]
